FAERS Safety Report 13922242 (Version 3)
Quarter: 2017Q4

REPORT INFORMATION
  Report Type: Report from Study
  Country: US (occurrence: US)
  Receive Date: 20170830
  Receipt Date: 20171117
  Transmission Date: 20180320
  Serious: Yes (Other)
  Sender: FDA-Public Use
  Company Number: US-BAYER-2017-162292

PATIENT
  Age: 83 Year
  Sex: Male

DRUGS (3)
  1. NEXAVAR [Suspect]
     Active Substance: SORAFENIB
     Indication: RENAL CANCER
     Dosage: 200 MG, BID
     Route: 048
     Dates: start: 201708
  2. NEXAVAR [Suspect]
     Active Substance: SORAFENIB
     Indication: RENAL CANCER
     Dosage: 200 MG, BID
     Route: 048
  3. NEXAVAR [Suspect]
     Active Substance: SORAFENIB
     Indication: RENAL CANCER
     Dosage: 400 MG, BID
     Route: 048
     Dates: start: 20170803, end: 201708

REACTIONS (10)
  - Blister [None]
  - Balance disorder [Recovering/Resolving]
  - Dizziness [None]
  - Pruritus [Recovering/Resolving]
  - Fall [None]
  - Skin lesion [None]
  - Asthenia [None]
  - Pruritus [None]
  - Fatigue [Recovering/Resolving]
  - Aphonia [None]

NARRATIVE: CASE EVENT DATE: 20170803
